FAERS Safety Report 6160583-0 (Version None)
Quarter: 2009Q2

REPORT INFORMATION
  Report Type: 
  Country: None (occurrence: None)
  Receive Date: 20090416
  Receipt Date: 20090406
  Transmission Date: 20091009
  Serious: Yes (Death, Hospitalization)
  Sender: FDA-Public Use
  Company Number: PAR_02925_2009

PATIENT
  Weight: 68 kg

DRUGS (8)
  1. MEGESTROL ACETATE [Suspect]
     Indication: ILL-DEFINED DISORDER
     Dosage: (160 MG QD ORAL)
     Route: 048
     Dates: start: 20060328
  2. SUNITINIB MALATE [Suspect]
     Indication: METASTATIC RENAL CELL CARCINOMA
     Dosage: (50 MG QD ORAL)
     Route: 048
     Dates: start: 20060410
  3. FENTANYL [Concomitant]
  4. COMBISARTAN [Concomitant]
  5. LEVOTIROXINA [Concomitant]
  6. DICLOFENAC [Concomitant]
  7. PARACETAMOL [Concomitant]
  8. DEXAMETHASONE TAB [Concomitant]

REACTIONS (1)
  - PULMONARY EMBOLISM [None]
